FAERS Safety Report 5171122-5 (Version None)
Quarter: 2006Q4

REPORT INFORMATION
  Report Type: 
  Country: None (occurrence: None)
  Receive Date: 20061206
  Receipt Date: 20061206
  Transmission Date: 20070319
  Serious: No
  Sender: FDA-Public Use
  Company Number: None

PATIENT
  Age: 68 Year
  Sex: Female
  Weight: 72.5755 kg

DRUGS (1)
  1. COREG [Suspect]
     Indication: CARDIAC DISORDER
     Dosage: 3.125   2XDAILY  PO
     Route: 048
     Dates: start: 20061128, end: 20061205

REACTIONS (2)
  - DIARRHOEA [None]
  - PRURITUS [None]
